FAERS Safety Report 8798202 (Version 1)
Quarter: 2012Q4

REPORT INFORMATION
  Report Type: 
  Country: HU (occurrence: HU)
  Receive Date: 20120920
  Receipt Date: 20120920
  Transmission Date: 20130627
  Serious: Yes (Other)
  Sender: FDA-Public Use
  Company Number: HU-PFIZER INC-2012229758

PATIENT
  Age: 80 Year
  Sex: Female
  Weight: 78 kg

DRUGS (7)
  1. XALATAN [Suspect]
     Indication: GLAUCOMA
     Dosage: 1x1 drop/day
     Dates: start: 20110711
  2. CONCOR [Concomitant]
     Dosage: UNK
     Dates: start: 2012
  3. RYTMONORM [Concomitant]
     Dosage: UNK
     Dates: start: 201206
  4. SYNCUMAR [Concomitant]
     Dosage: UNK
     Dates: start: 201206
  5. FRONTIN [Concomitant]
     Dosage: UNK
  6. AMLOBESYL [Concomitant]
     Dosage: UNK
  7. AZARGA [Concomitant]
     Dosage: UNK
     Dates: start: 201107

REACTIONS (3)
  - Visual impairment [Not Recovered/Not Resolved]
  - Vision blurred [Not Recovered/Not Resolved]
  - Lacrimation increased [Not Recovered/Not Resolved]
